FAERS Safety Report 9507240 (Version 1)
Quarter: 2013Q1

REPORT INFORMATION
  Report Type: Spontaneous
  Country: US (occurrence: None)
  Receive Date: 20130301
  Receipt Date: 20130301
  Transmission Date: 20140127
  Serious: Yes (Disabling, Other)
  Sender: FDA-Public Use
  Company Number: RB-40673-2012

PATIENT
  Sex: Female

DRUGS (2)
  1. SUBUTEX [Suspect]
     Indication: PAIN MANAGEMENT
     Dosage: (DOSING DETAILS UNKNOWN UNKNOWN)
  2. SUBOXONE [Suspect]
     Indication: PAIN MANAGEMENT
     Dosage: (DOSING DETAILS UNKNOWN UNKNOWN)

REACTIONS (2)
  - Off label use [None]
  - Back injury [None]
